FAERS Safety Report 12352033 (Version 4)
Quarter: 2016Q3

REPORT INFORMATION
  Report Type: Report from Study
  Country: ID (occurrence: ID)
  Receive Date: 20160510
  Receipt Date: 20160803
  Transmission Date: 20161109
  Serious: Yes (Death, Hospitalization, Other)
  Sender: FDA-Public Use
  Company Number: ID-BAYER-2016-085147

PATIENT
  Age: 48 Year
  Sex: Female

DRUGS (2)
  1. NEXAVAR [Suspect]
     Active Substance: SORAFENIB
     Indication: HEPATOCELLULAR CARCINOMA
     Dosage: 2 X 200 MG
     Dates: start: 20160620, end: 20160622
  2. NEXAVAR [Suspect]
     Active Substance: SORAFENIB
     Indication: HEPATOCELLULAR CARCINOMA
     Dosage: 200 MG, BID
     Route: 048
     Dates: start: 20160408, end: 20160611

REACTIONS (19)
  - Erythema [Not Recovered/Not Resolved]
  - Decreased appetite [Not Recovered/Not Resolved]
  - Intentional product misuse [None]
  - Diarrhoea [Not Recovered/Not Resolved]
  - Mobility decreased [None]
  - Ocular icterus [Not Recovered/Not Resolved]
  - Hospitalisation [None]
  - Faeces discoloured [Recovered/Resolved]
  - Abdominal pain upper [None]
  - Pharyngeal haemorrhage [Recovering/Resolving]
  - Death [Fatal]
  - Fatigue [Recovered/Resolved]
  - Nausea [Not Recovered/Not Resolved]
  - Myalgia [Not Recovered/Not Resolved]
  - Abdominal rigidity [Not Recovered/Not Resolved]
  - Feeling hot [None]
  - Hypophagia [Recovered/Resolved]
  - Haematemesis [None]
  - Asthenia [Not Recovered/Not Resolved]

NARRATIVE: CASE EVENT DATE: 2016
